FAERS Safety Report 8609543-8 (Version None)
Quarter: 2012Q3

REPORT INFORMATION
  Report Type: 
  Country: None (occurrence: None)
  Receive Date: 20120821
  Receipt Date: 20120815
  Transmission Date: 20120928
  Serious: Yes (Other)
  Sender: FDA-Public Use
  Company Number: AU-JNJFOC-20120808356

PATIENT
  Sex: Female

DRUGS (7)
  1. STELARA [Suspect]
     Indication: PSORIASIS
     Route: 058
     Dates: start: 20111212
  2. STELARA [Suspect]
     Route: 058
     Dates: start: 20120820
  3. STELARA [Suspect]
     Route: 058
     Dates: start: 20120305
  4. STELARA [Suspect]
     Route: 058
     Dates: start: 20110627
  5. STELARA [Suspect]
     Route: 058
     Dates: start: 20110725
  6. STELARA [Suspect]
     Route: 058
     Dates: start: 20110530
  7. STELARA [Suspect]
     Route: 058
     Dates: start: 20120528

REACTIONS (3)
  - BREAST CYST [None]
  - INAPPROPRIATE SCHEDULE OF DRUG ADMINISTRATION [None]
  - RENAL CYST [None]
